FAERS Safety Report 17413562 (Version 1)
Quarter: 2020Q1

REPORT INFORMATION
  Report Type: Spontaneous
  Country: US (occurrence: US)
  Receive Date: 20200213
  Receipt Date: 20200213
  Transmission Date: 20200409
  Serious: No
  Sender: FDA-Public Use
  Company Number: None

PATIENT
  Age: 39 Year
  Sex: Male

DRUGS (2)
  1. METHIMAZOLE 5MG TABLET [Suspect]
     Active Substance: METHIMAZOLE
     Route: 048
  2. AIMOVIG [Suspect]
     Active Substance: ERENUMAB-AOOE

REACTIONS (2)
  - Dry mouth [None]
  - Dry eye [None]

NARRATIVE: CASE EVENT DATE: 20200213
